FAERS Safety Report 4546386-9 (Version None)
Quarter: 2005Q1

REPORT INFORMATION
  Report Type: 
  Country: None (occurrence: None)
  Receive Date: 20050103
  Receipt Date: 20041119
  Transmission Date: 20050727
  Serious: Yes (Other)
  Sender: FDA-Public Use
  Company Number: 2004097565

PATIENT
  Age: 68 Year
  Sex: Female

DRUGS (4)
  1. CELEBREX [Suspect]
     Indication: ILL-DEFINED DISORDER
     Dosage: 400 MG (200 MG, BID), ORAL
     Route: 048
  2. OMEPRAZOLE [Concomitant]
  3. CONJUGATED ESTROGENS [Concomitant]
  4. MEDROXYPROGESTERONE ACETATE [Concomitant]

REACTIONS (3)
  - DIZZINESS [None]
  - HYPOTENSION [None]
  - URTICARIA [None]
